FAERS Safety Report 7788099-6 (Version None)
Quarter: 2011Q3

REPORT INFORMATION
  Report Type: 
  Country: None (occurrence: None)
  Receive Date: 20110929
  Receipt Date: 20110929
  Transmission Date: 20111222
  Serious: No
  Sender: FDA-Public Use
  Company Number: None

PATIENT
  Age: 75 Year
  Sex: Female
  Weight: 62.1428 kg

DRUGS (1)
  1. RANITIDINE [Suspect]
     Indication: HIATUS HERNIA
     Dosage: 150 MG 2 X DAY
     Dates: start: 20100901, end: 20110301

REACTIONS (1)
  - BURNING SENSATION [None]
